FAERS Safety Report 6525618-1 (Version None)
Quarter: 2009Q4

REPORT INFORMATION
  Report Type: 
  Country: None (occurrence: None)
  Receive Date: 20091222
  Receipt Date: 20091217
  Transmission Date: 20100525
  Serious: Yes (Death)
  Sender: FDA-Public Use
  Company Number: 2009SP042114

PATIENT
  Age: 61 Year
  Sex: Male
  Weight: 55.6 kg

DRUGS (14)
  1. TEMODAL [Suspect]
     Indication: ANAPLASTIC ASTROCYTOMA
     Dosage: 100 MG/M2; QD; PO, 220 MG/M2; QD; PO, 300 MG/M2; QD; PO
     Route: 048
     Dates: start: 20071121, end: 20080108
  2. TEMODAL [Suspect]
     Indication: ANAPLASTIC ASTROCYTOMA
     Dosage: 100 MG/M2; QD; PO, 220 MG/M2; QD; PO, 300 MG/M2; QD; PO
     Route: 048
     Dates: start: 20080205, end: 20080209
  3. TEMODAL [Suspect]
     Indication: ANAPLASTIC ASTROCYTOMA
     Dosage: 100 MG/M2; QD; PO, 220 MG/M2; QD; PO, 300 MG/M2; QD; PO
     Route: 048
     Dates: start: 20080304, end: 20080308
  4. TEMODAL [Suspect]
     Indication: ANAPLASTIC ASTROCYTOMA
     Dosage: 100 MG/M2; QD; PO, 220 MG/M2; QD; PO, 300 MG/M2; QD; PO
     Route: 048
     Dates: start: 20080401, end: 20080405
  5. TEMODAL [Suspect]
     Indication: ANAPLASTIC ASTROCYTOMA
     Dosage: 100 MG/M2; QD; PO, 220 MG/M2; QD; PO, 300 MG/M2; QD; PO
     Route: 048
     Dates: start: 20080429, end: 20080503
  6. TEMODAL [Suspect]
     Indication: ANAPLASTIC ASTROCYTOMA
     Dosage: 100 MG/M2; QD; PO, 220 MG/M2; QD; PO, 300 MG/M2; QD; PO
     Route: 048
     Dates: start: 20080527, end: 20080531
  7. TEMODAL [Suspect]
     Indication: ANAPLASTIC ASTROCYTOMA
     Dosage: 100 MG/M2; QD; PO, 220 MG/M2; QD; PO, 300 MG/M2; QD; PO
     Route: 048
     Dates: start: 20080624, end: 20080628
  8. TEMODAL [Suspect]
     Indication: ANAPLASTIC ASTROCYTOMA
     Dosage: 100 MG/M2; QD; PO, 220 MG/M2; QD; PO, 300 MG/M2; QD; PO
     Route: 048
     Dates: start: 20080723, end: 20080727
  9. TEMODAL [Suspect]
     Indication: ANAPLASTIC ASTROCYTOMA
     Dosage: 100 MG/M2; QD; PO, 220 MG/M2; QD; PO, 300 MG/M2; QD; PO
     Route: 048
     Dates: start: 20080820, end: 20080824
  10. TEMODAL [Suspect]
     Indication: ANAPLASTIC ASTROCYTOMA
     Dosage: 100 MG/M2; QD; PO, 220 MG/M2; QD; PO, 300 MG/M2; QD; PO
     Route: 048
     Dates: start: 20080917, end: 20080921
  11. TEMODAL [Suspect]
     Indication: ANAPLASTIC ASTROCYTOMA
     Dosage: 100 MG/M2; QD; PO, 220 MG/M2; QD; PO, 300 MG/M2; QD; PO
     Route: 048
     Dates: start: 20081105, end: 20081109
  12. BAKTAR [Concomitant]
  13. AMLODIN OD [Concomitant]
  14. PARIET [Concomitant]

REACTIONS (1)
  - PULMONARY EMBOLISM [None]
